FAERS Safety Report 23044928 (Version 6)
Quarter: 2024Q1

REPORT INFORMATION
  Report Type: Spontaneous
  Country: US (occurrence: US)
  Receive Date: 20231009
  Receipt Date: 20240308
  Transmission Date: 20240410
  Serious: Yes (Death, Other)
  Sender: FDA-Public Use
  Company Number: US-GLAXOSMITHKLINE-US2023AMR136048

PATIENT
  Sex: Female

DRUGS (1)
  1. ZEJULA [Suspect]
     Active Substance: NIRAPARIB
     Indication: Vulval cancer
     Dosage: 200 MG, QD

REACTIONS (12)
  - Death [Fatal]
  - Peripheral swelling [Unknown]
  - Pain in extremity [Unknown]
  - Pain [Unknown]
  - Nausea [Unknown]
  - Dry mouth [Unknown]
  - Body temperature increased [Unknown]
  - Decreased appetite [Unknown]
  - Ageusia [Unknown]
  - Asthenia [Unknown]
  - Diarrhoea [Unknown]
  - Off label use [Unknown]
